FAERS Safety Report 20626308 (Version 1)
Quarter: 2022Q1

REPORT INFORMATION
  Report Type: Spontaneous
  Country: US (occurrence: None)
  Receive Date: 20220323
  Receipt Date: 20220323
  Transmission Date: 20220424
  Serious: Yes (Hospitalization)
  Sender: FDA-Public Use
  Company Number: US-ROCHE-3020770

PATIENT
  Sex: Male
  Weight: 86.260 kg

DRUGS (4)
  1. ERIVEDGE [Suspect]
     Active Substance: VISMODEGIB
     Indication: Basal cell carcinoma
     Dosage: ONE CAPSULE DAILY BY MOUTH FOR 14 DAYS THEN OFF FOR 14 DAYS
     Route: 048
     Dates: start: 20210708
  2. LISINOPRIL [Concomitant]
     Active Substance: LISINOPRIL
     Route: 048
     Dates: start: 20210706
  3. METFORMIN HYDROCHLORIDE [Concomitant]
     Active Substance: METFORMIN HYDROCHLORIDE
     Route: 048
     Dates: start: 20210706
  4. ERIVEDGE [Concomitant]
     Active Substance: VISMODEGIB
     Route: 048
     Dates: start: 20210706

REACTIONS (1)
  - COVID-19 [Recovering/Resolving]
